FAERS Safety Report 10169327 (Version 1)
Quarter: 2014Q2

REPORT INFORMATION
  Report Type: Spontaneous
  Country: US (occurrence: US)
  Receive Date: 20140513
  Receipt Date: 20140513
  Transmission Date: 20141212
  Serious: Yes (Hospitalization, Other)
  Sender: FDA-Public Use
  Company Number: US-RB-066995-14

PATIENT
  Sex: Male

DRUGS (6)
  1. SUBOXONE FILM [Suspect]
     Indication: DRUG DEPENDENCE
     Dosage: SUBOXONE FILM
     Route: 060
     Dates: start: 2011
  2. LYRICA [Concomitant]
     Indication: PAIN
     Dosage: DOSING DETAILS UNKNOWN
     Route: 048
  3. METAMUCIL [Concomitant]
     Indication: CONSTIPATION
     Dosage: DOSING DETAILS UNKNOWN
     Route: 048
  4. FLOMAX [Concomitant]
     Indication: PRODUCT USED FOR UNKNOWN INDICATION
     Dosage: DOSING DETAILS UNKNOWN
     Route: 048
  5. NICOTINE [Concomitant]
     Indication: NICOTINE DEPENDENCE
     Dosage: DOSING DETAILS UNKNOWN
     Route: 055
  6. SIMVASTATIN [Concomitant]
     Indication: PRODUCT USED FOR UNKNOWN INDICATION
     Dosage: DOSING DETAILS UNKNOWN
     Route: 048

REACTIONS (10)
  - Cystitis [Recovered/Resolved]
  - Haematuria [Not Recovered/Not Resolved]
  - Urinary retention [Recovering/Resolving]
  - Memory impairment [Not Recovered/Not Resolved]
  - Pneumonia [Recovered/Resolved]
  - Fall [Recovered/Resolved]
  - Concussion [Recovered/Resolved]
  - Skull fracture [Recovered/Resolved]
  - Facial bones fracture [Recovered/Resolved]
  - Jaw fracture [Recovered/Resolved]
